FAERS Safety Report 14740209 (Version 3)
Quarter: 2018Q2

REPORT INFORMATION
  Report Type: Spontaneous
  Country: US (occurrence: US)
  Receive Date: 20180410
  Receipt Date: 20180605
  Transmission Date: 20180711
  Serious: No
  Sender: FDA-Public Use
  Company Number: US-PFIZER INC-2018144972

PATIENT
  Age: 62 Year
  Sex: Female

DRUGS (2)
  1. TRAZODONE [Concomitant]
     Active Substance: TRAZODONE HYDROCHLORIDE
     Dosage: UNK
  2. SUTENT [Suspect]
     Active Substance: SUNITINIB MALATE
     Indication: RENAL NEOPLASM
     Dosage: 50 MG, CYCLIC (TAKE 1 CAPSULE BY MOUTH ONCE DAILY FOR 2 WEEKS FOLLOWED BY 1 WEEK REST)
     Route: 048
     Dates: start: 20180402

REACTIONS (2)
  - Rash [Unknown]
  - Abdominal pain upper [Unknown]
